FAERS Safety Report 4358811-7 (Version None)
Quarter: 2004Q2

REPORT INFORMATION
  Report Type: 
  Country: None (occurrence: None)
  Receive Date: 20040511
  Receipt Date: 20040503
  Transmission Date: 20050107
  Serious: Yes (Other)
  Sender: FDA-Public Use
  Company Number: 1000

PATIENT
  Age: 26 Year
  Sex: Female
  Weight: 92.9874 kg

DRUGS (3)
  1. AMNESTEEM [Suspect]
     Indication: ACNE
     Dosage: 20 MG BID, 20 MG PO QD
     Route: 048
     Dates: start: 20040101
  2. AMNESTEEM [Suspect]
     Dosage: 40 MG PO QD, 40 MG BID PO
     Route: 048
     Dates: end: 20040430
  3. DESOGESTREL WITH ESTROGENS [Concomitant]

REACTIONS (2)
  - ANAEMIA [None]
  - BLOOD TRIGLYCERIDES INCREASED [None]
